FAERS Safety Report 8236133-1 (Version None)
Quarter: 2012Q1

REPORT INFORMATION
  Report Type: 
  Country: None (occurrence: None)
  Receive Date: 20120327
  Receipt Date: 20120314
  Transmission Date: 20120608
  Serious: No
  Sender: FDA-Public Use
  Company Number: US-BIOGENIDEC-2012BI006064

PATIENT
  Age: 51 Year
  Sex: Female

DRUGS (1)
  1. TYSABRI [Suspect]
     Indication: MULTIPLE SCLEROSIS
     Route: 042
     Dates: start: 20120208

REACTIONS (6)
  - CHEST PAIN [None]
  - VERTIGO [None]
  - RASH [None]
  - ARTHRALGIA [None]
  - PRURITUS GENERALISED [None]
  - DIZZINESS [None]
